FAERS Safety Report 5062010-3 (Version None)
Quarter: 2006Q3

REPORT INFORMATION
  Report Type: 
  Country: None (occurrence: None)
  Receive Date: 20060703
  Receipt Date: 20051013
  Transmission Date: 20061208
  Serious: No
  Sender: FDA-Public Use
  Company Number: 2005S1010342

PATIENT
  Age: 29 Year
  Sex: Male
  Weight: 70.3 kg

DRUGS (7)
  1. CLOZAPINE [Suspect]
     Indication: SCHIZOPHRENIA
     Dosage: 100 MG; HS; PO
     Route: 048
     Dates: start: 20051006
  2. PHENOBARBITAL TAB [Concomitant]
  3. PHENYTOIN [Concomitant]
  4. HALOPERIDOL [Concomitant]
  5. BENZTROPINE MESYLATE [Concomitant]
  6. CLONAZEPAM [Concomitant]
  7. OLANZAPINE [Concomitant]

REACTIONS (1)
  - GRANULOCYTOPENIA [None]
